FAERS Safety Report 16320175 (Version 1)
Quarter: 2019Q2

REPORT INFORMATION
  Report Type: Spontaneous
  Country: US (occurrence: US)
  Receive Date: 20190515
  Receipt Date: 20190515
  Transmission Date: 20190711
  Serious: Yes (Death)
  Sender: FDA-Public Use
  Company Number: None

PATIENT
  Age: 86 Year
  Sex: Female

DRUGS (1)
  1. IBRANCE [Suspect]
     Active Substance: PALBOCICLIB
     Indication: OESTROGEN RECEPTOR ASSAY POSITIVE
     Dosage: ?          OTHER FREQUENCY:QD X 21,7 DAYS OFF;?
     Route: 048
     Dates: start: 20190314

REACTIONS (1)
  - Death [None]

NARRATIVE: CASE EVENT DATE: 20190512
